FAERS Safety Report 17998507 (Version 5)
Quarter: 2021Q1

REPORT INFORMATION
  Report Type: Other
  Country: US (occurrence: US)
  Receive Date: 20200709
  Receipt Date: 20210317
  Transmission Date: 20210419
  Serious: Yes (Other)
  Sender: FDA-Public Use
  Company Number: US-ROCHE-2637823

PATIENT
  Sex: Female

DRUGS (2)
  1. ALECENSA [Suspect]
     Active Substance: ALECTINIB HYDROCHLORIDE
     Indication: LUNG NEOPLASM MALIGNANT
     Dosage: TAKE 4 CAPSULE(S) BY MOUTH TWICE A DAY WITH FOOD
     Route: 048
  2. ALECENSA [Suspect]
     Active Substance: ALECTINIB HYDROCHLORIDE
     Dosage: TAKE 4 CAPSULE(S) BY MOUTH TWICE A DAY WITH FOOD; ONGOING: NOT REPORTED
     Route: 048

REACTIONS (9)
  - Cataract [Unknown]
  - Weight decreased [Unknown]
  - Visual impairment [Unknown]
  - Vision blurred [Unknown]
  - Dysgeusia [Unknown]
  - Blood count abnormal [Unknown]
  - Hypoacusis [Unknown]
  - Memory impairment [Unknown]
  - Fatigue [Unknown]
